FAERS Safety Report 15635332 (Version 1)
Quarter: 2018Q4

REPORT INFORMATION
  Report Type: Spontaneous
  Country: DE (occurrence: DE)
  Receive Date: 20181120
  Receipt Date: 20181120
  Transmission Date: 20190205
  Serious: Yes (Hospitalization, Other)
  Sender: FDA-Public Use
  Company Number: DE-AUROBINDO-AUR-APL-2018-055608

PATIENT
  Age: 78 Year
  Sex: Male
  Weight: 95 kg

DRUGS (45)
  1. CEFPODOXIME [Suspect]
     Active Substance: CEFPODOXIME
     Indication: COLORECTAL CANCER
     Dosage: 4300 MILLIGRAM, 3 WEEK
     Route: 048
     Dates: start: 20151127, end: 20160512
  2. CAPECITABINE. [Suspect]
     Active Substance: CAPECITABINE
     Dosage: 3000 MILLIGRAM, 3 WEEK
     Route: 048
     Dates: start: 20161014, end: 20161117
  3. BEVACIZUMAB. [Suspect]
     Active Substance: BEVACIZUMAB
     Indication: COLORECTAL CANCER METASTATIC
     Dosage: 712.5 MILLIGRAM, 3 WEEK
     Route: 042
     Dates: start: 20151127
  4. BEVACIZUMAB. [Suspect]
     Active Substance: BEVACIZUMAB
     Dosage: 645 MILLIGRAM, 3 WEEK
     Route: 042
     Dates: start: 20160812
  5. BEVACIZUMAB. [Suspect]
     Active Substance: BEVACIZUMAB
     Dosage: 645 MILLIGRAM, 3 WEEK
     Route: 042
     Dates: start: 20161104
  6. MARCUMAR [Concomitant]
     Active Substance: PHENPROCOUMON
     Dosage: ACCORDING TO QUICK VALUE ()
     Route: 048
  7. NOVALGIN (METAMIZOLE SODIUM) [Concomitant]
     Active Substance: METAMIZOLE SODIUM
     Dosage: 500 MILLIGRAM, ONCE A DAY
     Route: 048
     Dates: start: 20160606
  8. CIPROFLOXACIN. [Concomitant]
     Active Substance: CIPROFLOXACIN
     Indication: PRODUCT USED FOR UNKNOWN INDICATION
     Dosage: 250 MILLIGRAM, ONCE A DAY
     Route: 048
     Dates: start: 20170512, end: 20170516
  9. DEXAMETHASONE. [Concomitant]
     Active Substance: DEXAMETHASONE
     Indication: INFECTION
     Dosage: 8 MILLIGRAM, DAY 1 AND 2 OF CHEMOTHERAPY
     Route: 048
     Dates: start: 20161128, end: 20170805
  10. FORTIMEL [Concomitant]
     Active Substance: DIETARY SUPPLEMENT
     Indication: WEIGHT DECREASED
     Dosage: UNK
     Route: 048
     Dates: end: 20160923
  11. HCTZ [Concomitant]
     Active Substance: HYDROCHLOROTHIAZIDE
     Indication: HYPERTENSION
     Dosage: 25 MILLIGRAM, ONCE A DAY
     Route: 048
     Dates: start: 20150909
  12. CAPECITABINE. [Suspect]
     Active Substance: CAPECITABINE
     Dosage: 4000 MILLIGRAM, 3 WEEK
     Route: 048
     Dates: start: 20160902
  13. MARCUMAR [Concomitant]
     Active Substance: PHENPROCOUMON
     Indication: ATRIAL FIBRILLATION
     Dosage: UNK
     Route: 058
     Dates: start: 20151218, end: 20160922
  14. THIAMINE. [Concomitant]
     Active Substance: THIAMINE
     Indication: PRODUCT USED FOR UNKNOWN INDICATION
     Dosage: 200 MILLIGRAM
     Route: 048
     Dates: start: 20170123
  15. LINEZOLID. [Concomitant]
     Active Substance: LINEZOLID
     Indication: PRODUCT USED FOR UNKNOWN INDICATION
     Dosage: 600 MILLIGRAM, ONCE A DAY
     Route: 048
     Dates: start: 20170331, end: 20170409
  16. BEVACIZUMAB. [Suspect]
     Active Substance: BEVACIZUMAB
     Dosage: 712.5 MILLIGRAM, 3 WEEK
     Route: 042
     Dates: start: 20160318
  17. METAMIZOL                          /06276701/ [Concomitant]
     Active Substance: METAMIZOLE
     Indication: GROIN PAIN
     Dosage: 30 GTT
     Route: 048
     Dates: start: 20151123
  18. NOVALGIN (METAMIZOLE SODIUM) [Concomitant]
     Active Substance: METAMIZOLE SODIUM
     Indication: PRODUCT USED FOR UNKNOWN INDICATION
     Dosage: 500 MILLIGRAM, ONCE A DAY
     Route: 048
     Dates: start: 20160318
  19. ATROPIN                            /00002801/ [Concomitant]
     Active Substance: ATROPINE
     Indication: CHOLINERGIC SYNDROME
     Dosage: CYCLICAL, PRIOR TO CHEMOTHERAPY WITH IRINOTECAN,
     Route: 058
     Dates: start: 20161128, end: 20170804
  20. VERGENTAN [Concomitant]
     Active Substance: ALIZAPRIDE HYDROCHLORIDE
     Indication: NAUSEA
     Dosage: 50 MILLIGRAM, ONCE A DAY
     Route: 048
     Dates: start: 20151128
  21. GRANISETRON [Concomitant]
     Active Substance: GRANISETRON
     Indication: NAUSEA
     Dosage: DAY 1 OF CHEMOTHERAPY
     Route: 042
     Dates: start: 20161128, end: 20170804
  22. BETAISODONA [Concomitant]
     Active Substance: POVIDONE-IODINE
     Indication: NAIL BED INFLAMMATION
     Dosage: UNK, 1 DAY
     Route: 065
     Dates: start: 20161223, end: 20170113
  23. CAPECITABINE. [Suspect]
     Active Substance: CAPECITABINE
     Indication: COLORECTAL CANCER
     Dosage: 4300 MILLIGRAM, 3 WEEK
     Route: 048
     Dates: start: 20151127, end: 20160512
  24. CAPECITABINE. [Suspect]
     Active Substance: CAPECITABINE
     Dosage: 2500 MILLIGRAM, 3 WEEK
     Route: 048
     Dates: start: 20161223, end: 20170105
  25. BEVACIZUMAB. [Suspect]
     Active Substance: BEVACIZUMAB
     Dosage: 645 MILLIGRAM, 3 WEEK
     Route: 042
     Dates: start: 20161014
  26. BEVACIZUMAB. [Suspect]
     Active Substance: BEVACIZUMAB
     Dosage: 600 MILLIGRAM, 3 WEEK
     Route: 042
     Dates: start: 20161223
  27. VOLTAREN [Concomitant]
     Active Substance: DICLOFENAC SODIUM
     Indication: OEDEMA PERIPHERAL
     Dosage: UNK
     Route: 065
  28. BEVACIZUMAB. [Suspect]
     Active Substance: BEVACIZUMAB
     Dosage: 600 MILLIGRAM, 3 WEEK
     Route: 042
     Dates: start: 20160203
  29. NITRENDIPIN [Concomitant]
     Active Substance: NITRENDIPINE
     Indication: HYPERTENSION
     Dosage: 20 MILLIGRAM, ONCE A DAY
     Route: 048
     Dates: start: 2007
  30. BISOPROLOL [Concomitant]
     Active Substance: BISOPROLOL
     Indication: HYPERTENSION
     Dosage: 10 MILLIGRAM, ONCE A DAY
     Route: 048
     Dates: start: 2001
  31. IBUPROFEN. [Concomitant]
     Active Substance: IBUPROFEN
     Indication: PRODUCT USED FOR UNKNOWN INDICATION
     Dosage: 600 MILLIGRAM
     Route: 048
     Dates: start: 20160226
  32. PANTOPRAZOL                        /01263201/ [Concomitant]
     Active Substance: PANTOPRAZOLE
     Indication: PRODUCT USED FOR UNKNOWN INDICATION
     Dosage: 40 MILLIGRAM, ONCE A DAY
     Route: 048
     Dates: start: 20151123
  33. DEXAMETHASONE. [Concomitant]
     Active Substance: DEXAMETHASONE
     Dosage: 8 MILLIGRAM, CYCLICAL
     Route: 042
     Dates: start: 20161128, end: 20170804
  34. PHENPROCOUMON [Concomitant]
     Active Substance: PHENPROCOUMON
     Dosage: ACCORDING TO QUICK VALUE ()
     Route: 048
  35. IRINOTECAN [Concomitant]
     Active Substance: IRINOTECAN
     Indication: COLORECTAL CANCER
     Dosage: 200 MILLIGRAM, 3 WEEK
     Route: 042
     Dates: start: 20161128, end: 20170714
  36. CEFPODOXIME [Suspect]
     Active Substance: CEFPODOXIME
     Dosage: 200 MILLIGRAM, ONCE A DAY
     Route: 048
     Dates: start: 20170602, end: 20170612
  37. CAPECITABINE. [Suspect]
     Active Substance: CAPECITABINE
     Dosage: 2000 MILLIGRAM, 3 WEEK
     Route: 048
     Dates: start: 20170224, end: 20170525
  38. BEVACIZUMAB. [Suspect]
     Active Substance: BEVACIZUMAB
     Dosage: 712.5 MILLIGRAM, 3 WEEK
     Route: 042
     Dates: start: 20160129
  39. PHENPROCOUMON [Concomitant]
     Active Substance: PHENPROCOUMON
     Indication: ATRIAL FIBRILLATION
     Dosage: DEPENDING ON QUICK VALUE ()
     Route: 058
     Dates: start: 20151218, end: 20160922
  40. VOLTAREN [Concomitant]
     Active Substance: DICLOFENAC SODIUM
     Indication: PAIN IN EXTREMITY
     Dosage: UNK
     Route: 061
     Dates: start: 20160318
  41. TORASEMID [Concomitant]
     Active Substance: TORSEMIDE
     Indication: CARDIAC FAILURE
     Dosage: 5 MILLIGRAM, ONCE A DAY
     Route: 048
     Dates: start: 20150909
  42. CAPECITABINE. [Suspect]
     Active Substance: CAPECITABINE
     Dosage: 3000 MILLIGRAM, 3 WEEK
     Route: 048
     Dates: start: 20161104, end: 20170727
  43. VITAMIN B6 [Concomitant]
     Active Substance: PYRIDOXINE HYDROCHLORIDE
     Indication: PRODUCT USED FOR UNKNOWN INDICATION
     Dosage: UNK
     Route: 048
     Dates: start: 20161014
  44. OPIUM                              /00036301/ [Concomitant]
     Active Substance: OPIUM
     Indication: PRODUCT USED FOR UNKNOWN INDICATION
     Dosage: UNK
     Route: 048
     Dates: start: 20161223
  45. MACROGOL [Concomitant]
     Active Substance: POLYETHYLENE GLYCOLS
     Indication: CONSTIPATION
     Dosage: 1 DOSAGE FORM, ONCE A DAY
     Route: 048
     Dates: start: 20160426

REACTIONS (29)
  - Hip arthroplasty [Not Recovered/Not Resolved]
  - Incisional hernia [Unknown]
  - Gamma-glutamyltransferase increased [Not Recovered/Not Resolved]
  - Weight decreased [Not Recovered/Not Resolved]
  - Sinus tachycardia [Recovered/Resolved]
  - Fatigue [Not Recovered/Not Resolved]
  - Flank pain [Recovered/Resolved]
  - Proteinuria [Not Recovered/Not Resolved]
  - Cystitis [Not Recovered/Not Resolved]
  - Prothrombin time prolonged [Recovered/Resolved]
  - Dysgeusia [Recovered/Resolved]
  - Nail bed inflammation [Unknown]
  - Alopecia [Not Recovered/Not Resolved]
  - Prostatitis [Recovered/Resolved]
  - Dry mouth [Not Recovered/Not Resolved]
  - Blood bilirubin increased [Not Recovered/Not Resolved]
  - Dyspnoea [Recovered/Resolved]
  - Oedema peripheral [Not Recovered/Not Resolved]
  - Polyneuropathy [Not Recovered/Not Resolved]
  - Decreased appetite [Recovered/Resolved]
  - Constipation [Recovered/Resolved]
  - Mucosal inflammation [Recovered/Resolved]
  - Nausea [Recovered/Resolved]
  - Jaundice [Unknown]
  - Visual impairment [Unknown]
  - Palmar-plantar erythrodysaesthesia syndrome [Recovered/Resolved]
  - Blood uric acid increased [Recovered/Resolved]
  - Insomnia [Recovered/Resolved]
  - Skin ulcer [Not Recovered/Not Resolved]

NARRATIVE: CASE EVENT DATE: 20151127
